FAERS Safety Report 13968697 (Version 1)
Quarter: 2017Q3

REPORT INFORMATION
  Report Type: Spontaneous
  Country: GB (occurrence: GB)
  Receive Date: 20170914
  Receipt Date: 20170914
  Transmission Date: 20171128
  Serious: Yes (Other)
  Sender: FDA-Public Use
  Company Number: GB-PFIZER INC-1616639

PATIENT
  Age: 46 Year
  Sex: Female

DRUGS (27)
  1. CYTARABINE. [Suspect]
     Active Substance: CYTARABINE
     Indication: ACUTE MYELOID LEUKAEMIA
     Dosage: UNK
     Route: 065
     Dates: start: 20110819, end: 20110828
  2. NORETHISTERONE [Suspect]
     Active Substance: NORETHINDRONE
     Indication: PRODUCT USED FOR UNKNOWN INDICATION
     Dosage: 5 G, UNK
     Route: 065
     Dates: start: 20110818
  3. MORPHINE SULFATE. [Concomitant]
     Active Substance: MORPHINE SULFATE
     Indication: PRODUCT USED FOR UNKNOWN INDICATION
     Dosage: 5-10 MG
     Route: 042
     Dates: start: 20110822, end: 20110823
  4. MORPHINE SULFATE. [Concomitant]
     Active Substance: MORPHINE SULFATE
     Dosage: UNK
  5. VANCOMYCIN HCL [Suspect]
     Active Substance: VANCOMYCIN HYDROCHLORIDE
     Indication: PRODUCT USED FOR UNKNOWN INDICATION
     Dosage: 1 G, UNK
     Route: 065
     Dates: start: 20110904, end: 20110909
  6. GEMTUZUMAB OZOGAMICIN [Suspect]
     Active Substance: GEMTUZUMAB OZOGAMICIN
     Indication: MYELODYSPLASTIC SYNDROME
  7. CODEINE [Concomitant]
     Active Substance: CODEINE
     Indication: PRODUCT USED FOR UNKNOWN INDICATION
     Dosage: UNK
     Route: 048
     Dates: start: 20110817, end: 20110820
  8. OMEPRAZOLE. [Concomitant]
     Active Substance: OMEPRAZOLE
     Indication: PRODUCT USED FOR UNKNOWN INDICATION
     Dosage: UNK
     Route: 048
     Dates: start: 20110820, end: 20110908
  9. RANITIDINE. [Concomitant]
     Active Substance: RANITIDINE
     Indication: PRODUCT USED FOR UNKNOWN INDICATION
     Dosage: UNK
     Route: 048
     Dates: start: 20110908, end: 20110912
  10. DAUNORUBICIN [Suspect]
     Active Substance: DAUNORUBICIN
     Indication: MYELODYSPLASTIC SYNDROME
  11. GEMTUZUMAB OZOGAMICIN [Suspect]
     Active Substance: GEMTUZUMAB OZOGAMICIN
     Indication: ACUTE MYELOID LEUKAEMIA
     Dosage: 3 MG, UNK
     Route: 065
     Dates: start: 20110819, end: 20110828
  12. ALLOPURINOL. [Concomitant]
     Active Substance: ALLOPURINOL
     Indication: PRODUCT USED FOR UNKNOWN INDICATION
     Dosage: UNK
     Route: 048
     Dates: start: 20110828, end: 20110908
  13. DOCUSATE SODIUM. [Concomitant]
     Active Substance: DOCUSATE SODIUM
     Indication: PRODUCT USED FOR UNKNOWN INDICATION
     Dosage: UNK
     Route: 048
     Dates: start: 20110823, end: 20110914
  14. LORAZEPAM. [Concomitant]
     Active Substance: LORAZEPAM
     Indication: PRODUCT USED FOR UNKNOWN INDICATION
     Dosage: UNK
     Route: 048
     Dates: start: 20110914, end: 20110914
  15. ONDANSETRON [Concomitant]
     Active Substance: ONDANSETRON
     Indication: PRODUCT USED FOR UNKNOWN INDICATION
     Dosage: UNK
     Route: 048
     Dates: start: 20110822, end: 20110828
  16. MEROPENEM. [Suspect]
     Active Substance: MEROPENEM
     Indication: PRODUCT USED FOR UNKNOWN INDICATION
     Dosage: 1 G, UNK
     Route: 042
     Dates: start: 20110905, end: 20110910
  17. ACICLOVIR [Concomitant]
     Active Substance: ACYCLOVIR
     Indication: PRODUCT USED FOR UNKNOWN INDICATION
     Dosage: UNK
     Route: 048
  18. HUMANT ANTI-D IMMUNGLOBULIN [Concomitant]
     Indication: PRODUCT USED FOR UNKNOWN INDICATION
     Dosage: UNK
     Route: 058
     Dates: start: 20110902, end: 20110902
  19. PARACETAMOL [Concomitant]
     Active Substance: ACETAMINOPHEN
     Indication: PRODUCT USED FOR UNKNOWN INDICATION
     Dosage: UNK
     Route: 048
     Dates: start: 20110817, end: 20110828
  20. CYTARABINE. [Suspect]
     Active Substance: CYTARABINE
     Indication: MYELODYSPLASTIC SYNDROME
  21. ETOPOSIDE. [Suspect]
     Active Substance: ETOPOSIDE
     Indication: ACUTE MYELOID LEUKAEMIA
     Dosage: UNK
     Route: 065
     Dates: start: 20110819, end: 20110828
  22. TAZOCIN [Suspect]
     Active Substance: PIPERACILLIN SODIUM\TAZOBACTAM SODIUM
     Indication: PRODUCT USED FOR UNKNOWN INDICATION
     Dosage: 4.5 G, UNK
     Route: 042
     Dates: start: 20110822, end: 20110825
  23. CYCLIZINE [Concomitant]
     Active Substance: CYCLIZINE
     Indication: PRODUCT USED FOR UNKNOWN INDICATION
     Dosage: UNK
     Route: 042
     Dates: start: 20110903, end: 20110914
  24. ETOPOSIDE. [Suspect]
     Active Substance: ETOPOSIDE
     Indication: MYELODYSPLASTIC SYNDROME
  25. AMBISOME [Suspect]
     Active Substance: AMPHOTERICIN B
     Indication: PRODUCT USED FOR UNKNOWN INDICATION
     Dosage: 1000 MG, UNK
     Route: 042
     Dates: start: 20110831, end: 20110831
  26. DAUNORUBICIN [Suspect]
     Active Substance: DAUNORUBICIN
     Indication: ACUTE MYELOID LEUKAEMIA
     Dosage: UNK
     Route: 065
     Dates: start: 20110819, end: 20110828
  27. TRANEXAMIC ACID. [Concomitant]
     Active Substance: TRANEXAMIC ACID
     Indication: PRODUCT USED FOR UNKNOWN INDICATION
     Dosage: UNK
     Route: 048
     Dates: start: 20110831, end: 20110908

REACTIONS (2)
  - Platelet count increased [Recovered/Resolved]
  - Alanine aminotransferase increased [Recovered/Resolved]

NARRATIVE: CASE EVENT DATE: 20110910
